FAERS Safety Report 4525322-5 (Version None)
Quarter: 2004Q4

REPORT INFORMATION
  Report Type: 
  Country: None (occurrence: None)
  Receive Date: 20041213
  Receipt Date: 20041201
  Transmission Date: 20050328
  Serious: Yes (Death)
  Sender: FDA-Public Use
  Company Number: 200419244US

PATIENT
  Age: 66 Year
  Sex: Female

DRUGS (2)
  1. KETEK [Suspect]
     Indication: PNEUMONIA
     Dosage: DOSE: UNK
  2. ROCEPHIN [Concomitant]
     Dosage: DOSE: UNK
     Route: 051

REACTIONS (1)
  - MYOCARDIAL INFARCTION [None]
